FAERS Safety Report 20351864 (Version 1)
Quarter: 2022Q1

REPORT INFORMATION
  Report Type: Spontaneous
  Country: US (occurrence: US)
  Receive Date: 20220119
  Receipt Date: 20220119
  Transmission Date: 20220423
  Serious: Yes (Other)
  Sender: FDA-Public Use
  Company Number: US-JNJFOC-20211017473

PATIENT
  Age: 55 Year
  Sex: Male
  Weight: 129.39 kg

DRUGS (2)
  1. STELARA [Suspect]
     Active Substance: USTEKINUMAB
     Indication: Psoriasis
     Route: 058
     Dates: start: 2016
  2. RAPTIVA [Concomitant]
     Active Substance: EFALIZUMAB

REACTIONS (4)
  - Diabetes mellitus [Unknown]
  - COVID-19 [Recovered/Resolved]
  - Skin discolouration [Recovered/Resolved]
  - Lipids increased [Unknown]

NARRATIVE: CASE EVENT DATE: 20210101
